FAERS Safety Report 21290099 (Version 5)
Quarter: 2022Q4

REPORT INFORMATION
  Report Type: Report from Study
  Country: CA (occurrence: CA)
  Receive Date: 20220902
  Receipt Date: 20221103
  Transmission Date: 20230113
  Serious: Yes (Hospitalization)
  Sender: FDA-Public Use
  Company Number: CA-PFIZER INC-PV202200052728

PATIENT
  Age: 52 Year
  Sex: Female
  Weight: 73 kg

DRUGS (3)
  1. ENCORAFENIB [Suspect]
     Active Substance: ENCORAFENIB
     Indication: Cholangiocarcinoma
     Dosage: 450 MG, DAILY
     Dates: start: 20220811, end: 20220824
  2. BINIMETINIB [Suspect]
     Active Substance: BINIMETINIB
     Indication: Cholangiocarcinoma
     Dosage: 45 MG, 2X/DAY
     Dates: start: 20220811, end: 20220824
  3. LEVOTHYROXINE [Concomitant]
     Active Substance: LEVOTHYROXINE
     Indication: Hypothyroidism
     Dosage: UNK
     Route: 048
     Dates: start: 20120101

REACTIONS (1)
  - Pancreatitis [Recovered/Resolved]

NARRATIVE: CASE EVENT DATE: 20220825
